FAERS Safety Report 22348885 (Version 1)
Quarter: 2023Q2

REPORT INFORMATION
  Report Type: Spontaneous
  Country: CA (occurrence: CA)
  Receive Date: 20230522
  Receipt Date: 20230522
  Transmission Date: 20230722
  Serious: Yes (Hospitalization)
  Sender: FDA-Public Use
  Company Number: CA-002147023-NVSC2023CA111584

PATIENT
  Sex: Male

DRUGS (5)
  1. OCTREOTIDE [Suspect]
     Active Substance: OCTREOTIDE
     Indication: Diarrhoea
     Dosage: UNK
     Route: 065
  2. OCTREOTIDE [Suspect]
     Active Substance: OCTREOTIDE
  3. OCTREOTIDE [Suspect]
     Active Substance: OCTREOTIDE
  4. ENTACAPONE [Suspect]
     Active Substance: ENTACAPONE
     Indication: Parkinson^s disease
     Dosage: UNK
     Route: 065
  5. LOPERAMIDE [Suspect]
     Active Substance: LOPERAMIDE
     Indication: Diarrhoea
     Dosage: UNK
     Route: 065

REACTIONS (5)
  - Colitis microscopic [Recovered/Resolved]
  - Hypokalaemia [Recovered/Resolved]
  - Renal failure [Recovered/Resolved]
  - Hypovolaemia [Recovered/Resolved]
  - Drug ineffective [Recovered/Resolved]
